FAERS Safety Report 13343876 (Version 10)
Quarter: 2019Q2

REPORT INFORMATION
  Report Type: Spontaneous
  Country: FR (occurrence: FR)
  Receive Date: 20170316
  Receipt Date: 20190401
  Transmission Date: 20190711
  Serious: Yes (Other)
  Sender: FDA-Public Use
  Company Number: FR-009507513-1702FRA008153

PATIENT
  Age: 27 Year
  Sex: Female
  Weight: 50 kg

DRUGS (2)
  1. NEXPLANON [Suspect]
     Active Substance: ETONOGESTREL
     Dosage: 1 DF, UNK
     Route: 059
     Dates: start: 20161019
  2. NEXPLANON [Suspect]
     Active Substance: ETONOGESTREL
     Indication: CONTRACEPTION
     Dosage: 1 DF, UNK
     Route: 058
     Dates: start: 20131119, end: 20161019

REACTIONS (14)
  - Complication associated with device [Unknown]
  - Implant site haematoma [Recovered/Resolved]
  - Amenorrhoea [Recovered/Resolved]
  - Product dose omission [Unknown]
  - Implant site fibrosis [Unknown]
  - Dysmenorrhoea [Unknown]
  - Device dislocation [Unknown]
  - Systemic lupus erythematosus [Unknown]
  - Complication of device removal [Unknown]
  - Device deployment issue [Unknown]
  - Muscle twitching [Unknown]
  - Complication of device removal [Recovered/Resolved]
  - Exposure to radiation [Unknown]
  - Hypoaesthesia [Recovered/Resolved]

NARRATIVE: CASE EVENT DATE: 2016
